FAERS Safety Report 25387396 (Version 3)
Quarter: 2025Q3

REPORT INFORMATION
  Report Type: Spontaneous
  Country: JP (occurrence: JP)
  Receive Date: 20250602
  Receipt Date: 20250731
  Transmission Date: 20251020
  Serious: Yes (Other)
  Sender: BRISTOL-MYERS SQUIBB COMPANY
  Company Number: JP-BRISTOL-MYERS SQUIBB COMPANY-2025-075305

PATIENT
  Age: 73 Year
  Sex: Male
  Weight: 57 kg

DRUGS (4)
  1. ZEPOSIA [Suspect]
     Active Substance: OZANIMOD HYDROCHLORIDE
     Indication: Colitis ulcerative
     Route: 048
     Dates: end: 20250515
  2. ZEPOSIA [Suspect]
     Active Substance: OZANIMOD HYDROCHLORIDE
     Dosage: REGULAR DOSAGE
     Route: 048
     Dates: start: 20250515
  3. LIALDA [Suspect]
     Active Substance: MESALAMINE
     Indication: Colitis ulcerative
  4. BUDESONIDE [Concomitant]
     Active Substance: BUDESONIDE
     Indication: Colitis ulcerative
     Route: 054
     Dates: start: 20250526

REACTIONS (6)
  - Pyrexia [Recovered/Resolved]
  - Arthralgia [Recovered/Resolved]
  - White blood cell count increased [Recovered/Resolved]
  - Haematochezia [Recovered/Resolved]
  - Nasopharyngitis [Recovered/Resolved]
  - Condition aggravated [Recovered/Resolved]

NARRATIVE: CASE EVENT DATE: 20250522
